FAERS Safety Report 22338291 (Version 1)
Quarter: 2023Q2

REPORT INFORMATION
  Report Type: Spontaneous
  Country: US (occurrence: US)
  Receive Date: 20230518
  Receipt Date: 20230518
  Transmission Date: 20230721
  Serious: No
  Sender: FDA-Public Use
  Company Number: US-SA-SAC20230517000104

PATIENT

DRUGS (2)
  1. DUPIXENT [Suspect]
     Active Substance: DUPILUMAB
  2. ALCOHOL [Suspect]
     Active Substance: ALCOHOL

REACTIONS (5)
  - Condition aggravated [Unknown]
  - Skin exfoliation [Unknown]
  - Erythema [Unknown]
  - Ocular hyperaemia [Recovering/Resolving]
  - Eye inflammation [Recovering/Resolving]
